FAERS Safety Report 8269699-6 (Version None)
Quarter: 2012Q2

REPORT INFORMATION
  Report Type: 
  Country: None (occurrence: None)
  Receive Date: 20120406
  Receipt Date: 20120322
  Transmission Date: 20120825
  Serious: Yes (Congenital Anomaly, Other)
  Sender: FDA-Public Use
  Company Number: 20120180

PATIENT
  Sex: Female

DRUGS (6)
  1. PHENYTOIN SODIUM [Suspect]
     Indication: AFFECTIVE DISORDER
     Dosage: 500 MG AT LMP UNKNOWN
  2. PHENYTOIN SODIUM [Suspect]
     Indication: EPILEPSY
     Dosage: 500 MG AT LMP UNKNOWN
  3. LAMOTRGINE [Suspect]
     Indication: AFFECTIVE DISORDER
     Dosage: 300 MG AT 6 WEEKS
  4. LAMOTRGINE [Suspect]
     Indication: EPILEPSY
     Dosage: 300 MG AT 6 WEEKS
  5. VALPROIC ACID [Suspect]
     Indication: EPILEPSY
     Dosage: 3000 MG UNKNOWN
  6. VALPROIC ACID [Suspect]
     Indication: AFFECTIVE DISORDER
     Dosage: 3000 MG UNKNOWN

REACTIONS (5)
  - DEXTROCARDIA [None]
  - MATERNAL DRUGS AFFECTING FOETUS [None]
  - TALIPES [None]
  - MUSCLE CONTRACTURE [None]
  - CRANIOSYNOSTOSIS [None]
